FAERS Safety Report 17800056 (Version 3)
Quarter: 2022Q1

REPORT INFORMATION
  Report Type: Spontaneous
  Country: JP (occurrence: JP)
  Receive Date: 20200518
  Receipt Date: 20220130
  Transmission Date: 20220423
  Serious: Yes (Death, Other)
  Sender: FDA-Public Use
  Company Number: JP-JAZZ-2020-JP-006441

PATIENT
  Age: 54 Year
  Sex: Male
  Weight: 68.7 kg

DRUGS (5)
  1. DEFITELIO [Suspect]
     Active Substance: DEFIBROTIDE SODIUM
     Indication: Venoocclusive liver disease
     Dosage: 25 MILLIGRAM/KILOGRAM/DAY
     Route: 042
     Dates: start: 20200302, end: 20200316
  2. ACOALAN [Concomitant]
     Indication: Product used for unknown indication
     Dosage: UNKNOWN DOSE
     Dates: start: 20200303, end: 20200303
  3. ACOALAN [Concomitant]
     Dosage: UNKNOWN DOSE
     Dates: start: 20200309, end: 20200309
  4. ACOALAN [Concomitant]
     Dosage: UNKNOWN DOSE
     Dates: start: 20200311, end: 20200311
  5. NAFAMOSTAT [NAFAMOSTAT MESILATE] [Concomitant]
     Indication: Product used for unknown indication
     Dosage: UNK
     Dates: start: 20200316, end: 20200316

REACTIONS (2)
  - Venoocclusive liver disease [Fatal]
  - Off label use [Unknown]

NARRATIVE: CASE EVENT DATE: 20200302
